FAERS Safety Report 5157868-3 (Version None)
Quarter: 2006Q4

REPORT INFORMATION
  Report Type: 
  Country: None (occurrence: None)
  Receive Date: 20061115
  Receipt Date: 20061109
  Transmission Date: 20070319
  Serious: Yes (Other)
  Sender: FDA-Public Use
  Company Number: GXKR2006GB06171

PATIENT
  Sex: Female

DRUGS (2)
  1. TEMAZEPAM [Suspect]
     Indication: INITIAL INSOMNIA
     Dosage: 45-50 MG, QD
  2. ZOPICLONE (ZOPICLONE) [Concomitant]

REACTIONS (8)
  - DRUG DEPENDENCE [None]
  - DYSGEUSIA [None]
  - INSOMNIA [None]
  - INTENTIONAL OVERDOSE [None]
  - MALAISE [None]
  - MIDDLE INSOMNIA [None]
  - NERVOUSNESS [None]
  - TENSION [None]
